FAERS Safety Report 9358657 (Version 1)
Quarter: 2013Q2

REPORT INFORMATION
  Report Type: Report from Study
  Country: BR (occurrence: BR)
  Receive Date: 20130620
  Receipt Date: 20130620
  Transmission Date: 20140414
  Serious: Yes (Other)
  Sender: FDA-Public Use
  Company Number: PHHY2013BR061590

PATIENT
  Sex: Female

DRUGS (6)
  1. GALVUS [Suspect]
     Indication: DIABETES MELLITUS
     Dosage: UNK UKN, UNK
     Route: 048
  2. METFORMIN [Suspect]
     Indication: DIABETES MELLITUS
     Dosage: 2 DF, (850 MG) PER DAY, MORNING AND NIGHT
     Route: 048
     Dates: end: 20130613
  3. MERITOR [Suspect]
     Indication: DIABETES MELLITUS
     Dosage: 1 DF, IN THE MORNING
     Route: 048
  4. ONGLYZA [Suspect]
     Indication: DIABETES MELLITUS
     Dosage: 1 DF, (5 MG) AT NIGHT
     Route: 048
  5. LOSARTAN [Concomitant]
     Indication: HYPERTENSION
     Dosage: 2 DF, (100 MG) PER DAY
     Route: 048
  6. AMLODIPINE [Concomitant]
     Indication: HYPERTENSION
     Dosage: 1 DF, (5 MG) PER DAY
     Route: 048

REACTIONS (4)
  - Retinal haemorrhage [Not Recovered/Not Resolved]
  - Blindness [Not Recovered/Not Resolved]
  - Eye haemorrhage [Not Recovered/Not Resolved]
  - Blood glucose increased [Not Recovered/Not Resolved]
